FAERS Safety Report 21491490 (Version 1)
Quarter: 2022Q4

REPORT INFORMATION
  Report Type: Spontaneous
  Country: US (occurrence: None)
  Receive Date: 20221020
  Receipt Date: 20221020
  Transmission Date: 20230112
  Serious: No
  Sender: FDA-Public Use
  Company Number: None

PATIENT
  Age: 57 Year
  Sex: Female
  Weight: 63 kg

DRUGS (5)
  1. OCTAGAM IMMUNE GLOBULIN (HUMAN) [Suspect]
     Active Substance: HUMAN IMMUNOGLOBULIN G
     Indication: Myositis
     Route: 042
  2. OCTAGAM IMMUNE GLOBULIN (HUMAN) [Suspect]
     Active Substance: HUMAN IMMUNOGLOBULIN G
     Indication: Myositis
     Route: 042
  3. DIPHENHYDRAMINE [Concomitant]
  4. Methylprednisolone Sodium [Concomitant]
  5. ACETAMINOPHEN [Concomitant]

REACTIONS (3)
  - Chest pain [None]
  - Blood pressure increased [None]
  - COVID-19 [None]

NARRATIVE: CASE EVENT DATE: 20221019
